FAERS Safety Report 12495296 (Version 1)
Quarter: 2016Q2

REPORT INFORMATION
  Report Type: Spontaneous
  Country: US (occurrence: None)
  Receive Date: 20160623
  Receipt Date: 20160623
  Transmission Date: 20160815
  Serious: Yes (Hospitalization)
  Sender: FDA-Public Use
  Company Number: None

PATIENT
  Age: 22 Year
  Sex: Female
  Weight: 111 kg

DRUGS (5)
  1. PEG-L-ASPARAGINASE (K-H) [Suspect]
     Active Substance: PEGASPARGASE
     Dates: end: 20110626
  2. VINCRISTINE SULFATE. [Suspect]
     Active Substance: VINCRISTINE SULFATE
     Dates: end: 20110707
  3. CYTARABINE. [Suspect]
     Active Substance: CYTARABINE
     Dates: end: 20110623
  4. DOXORUBICIN HYDRLCHLORIDE [Suspect]
     Active Substance: DOXORUBICIN HYDROCHLORIDE
     Dates: end: 20110707
  5. METHOTREXATE [Suspect]
     Active Substance: METHOTREXATE
     Dates: end: 20110630

REACTIONS (5)
  - Respiratory failure [None]
  - Seizure [None]
  - Nystagmus [None]
  - Meningitis staphylococcal [None]
  - Paraparesis [None]

NARRATIVE: CASE EVENT DATE: 20110712
